FAERS Safety Report 6199189-6 (Version None)
Quarter: 2009Q2

REPORT INFORMATION
  Report Type: 
  Country: None (occurrence: None)
  Receive Date: 20090522
  Receipt Date: 20090511
  Transmission Date: 20091009
  Serious: No
  Sender: FDA-Public Use
  Company Number: A0779950A

PATIENT
  Age: 62 Year
  Sex: Male
  Weight: 118.2 kg

DRUGS (2)
  1. VERAMYST [Suspect]
     Dosage: 2SPR TWICE PER DAY
     Route: 045
  2. ZIAC [Concomitant]
     Dosage: 6.25MG PER DAY
     Route: 048
     Dates: start: 20030101

REACTIONS (1)
  - MUSCLE SPASMS [None]
